FAERS Safety Report 6384111-X (Version None)
Quarter: 2009Q4

REPORT INFORMATION
  Report Type: 
  Country: None (occurrence: None)
  Receive Date: 20091001
  Receipt Date: 20090921
  Transmission Date: 20100525
  Serious: Yes (Hospitalization)
  Sender: FDA-Public Use
  Company Number: US-KINGPHARMUSA00001-K200901170

PATIENT
  Age: 53 Year
  Sex: Male

DRUGS (5)
  1. SEPTRA [Suspect]
     Indication: CELLULITIS
  2. ASPIRIN [Concomitant]
     Dosage: 81 MG, QD
  3. WARFARIN SODIUM [Concomitant]
     Dosage: 2.5 MG, QHS
  4. METOPROLOL [Concomitant]
     Dosage: 25 MG, BID
  5. TORSEMIDE [Concomitant]
     Dosage: 10 MG, QD

REACTIONS (12)
  - ARTHRALGIA [None]
  - BLISTER [None]
  - DIZZINESS [None]
  - HEART RATE IRREGULAR [None]
  - LEUKOCYTOCLASTIC VASCULITIS [None]
  - NAUSEA [None]
  - OEDEMA PERIPHERAL [None]
  - PALPABLE PURPURA [None]
  - PETECHIAE [None]
  - RASH GENERALISED [None]
  - TACHYCARDIA [None]
  - VENOUS INSUFFICIENCY [None]
